FAERS Safety Report 9985862 (Version 1)
Quarter: 2014Q1

REPORT INFORMATION
  Report Type: Report from Study
  Country: US (occurrence: US)
  Receive Date: 20140307
  Receipt Date: 20140307
  Transmission Date: 20141002
  Serious: No
  Sender: FDA-Public Use
  Company Number: US-ABBVIE-13P-163-1089390-00

PATIENT
  Age: 35 Year
  Sex: Female

DRUGS (5)
  1. HUMIRA [Suspect]
     Indication: COLITIS ULCERATIVE
     Dates: start: 20130424, end: 20130424
  2. HUMIRA [Suspect]
     Dates: start: 20130508
  3. ZYRTEC [Concomitant]
     Indication: HYPERSENSITIVITY
     Dosage: 10 MG DAILY
  4. LIALDA [Concomitant]
     Indication: PRODUCT USED FOR UNKNOWN INDICATION
  5. PREDNISONE [Concomitant]
     Indication: PRODUCT USED FOR UNKNOWN INDICATION
     Dosage: 40 MG. REDUCED TO 20 MG DAILY

REACTIONS (5)
  - Dizziness [Unknown]
  - Rash erythematous [Not Recovered/Not Resolved]
  - Paraesthesia [Unknown]
  - Pruritus generalised [Not Recovered/Not Resolved]
  - Hypersensitivity [Unknown]
